FAERS Safety Report 6361274-3 (Version None)
Quarter: 2009Q3

REPORT INFORMATION
  Report Type: 
  Country: None (occurrence: None)
  Receive Date: 20090918
  Receipt Date: 20090914
  Transmission Date: 20100115
  Serious: Yes (Other)
  Sender: FDA-Public Use
  Company Number: JP-BAYER-200911371BYL

PATIENT
  Age: 30 Year
  Sex: Female
  Weight: 53 kg

DRUGS (21)
  1. FLUDARA [Suspect]
     Indication: APLASTIC ANAEMIA
     Dosage: AS USED: 30 MG/M2  UNIT DOSE: 50 MG
     Route: 042
     Dates: start: 20080828, end: 20080831
  2. ENDOXAN [Concomitant]
     Indication: APLASTIC ANAEMIA
     Dosage: AS USED: 25 MG/M2
     Route: 042
     Dates: start: 20080828, end: 20080831
  3. ALEMTUZUMAB [Concomitant]
     Indication: APLASTIC ANAEMIA
     Dosage: AS USED: 9 MG/M2
     Route: 042
     Dates: start: 20080825, end: 20080829
  4. METHOTREXATE [Concomitant]
     Dosage: AS USED: 15 MG
     Route: 042
     Dates: start: 20080904, end: 20080904
  5. METHOTREXATE [Concomitant]
     Dosage: AS USED: 11 MG
     Route: 042
     Dates: start: 20080909, end: 20080909
  6. METHOTREXATE [Concomitant]
     Dosage: AS USED: 11 MG
     Route: 042
     Dates: start: 20080909, end: 20080909
  7. SANDIMMUNE [Concomitant]
     Route: 041
     Dates: start: 20080902, end: 20080903
  8. SANDIMMUNE [Concomitant]
     Route: 041
     Dates: start: 20080923, end: 20080923
  9. SANDIMMUNE [Concomitant]
     Route: 041
     Dates: start: 20080929, end: 20080930
  10. SANDIMMUNE [Concomitant]
     Route: 041
     Dates: start: 20081030, end: 20081102
  11. SANDIMMUNE [Concomitant]
     Route: 041
     Dates: start: 20081024, end: 20081029
  12. SANDIMMUNE [Concomitant]
     Route: 041
     Dates: start: 20081015, end: 20081023
  13. SANDIMMUNE [Concomitant]
     Route: 041
     Dates: start: 20081011, end: 20081014
  14. SANDIMMUNE [Concomitant]
     Route: 041
     Dates: start: 20081001, end: 20081009
  15. SANDIMMUNE [Concomitant]
     Route: 041
     Dates: start: 20080924, end: 20080928
  16. SANDIMMUNE [Concomitant]
     Route: 041
     Dates: start: 20080915, end: 20080921
  17. SANDIMMUNE [Concomitant]
     Route: 041
     Dates: start: 20080904, end: 20080904
  18. SANDIMMUNE [Concomitant]
     Route: 041
     Dates: start: 20080905, end: 20080911
  19. SANDIMMUNE [Concomitant]
     Route: 041
     Dates: start: 20080912, end: 20080914
  20. CONCENTRATED RED CELLS [Concomitant]
     Indication: PACKED RED BLOOD CELL TRANSFUSION
     Route: 042
     Dates: start: 20080829, end: 20081006
  21. PLATELETS [Concomitant]
     Indication: PLATELET TRANSFUSION
     Route: 042
     Dates: start: 20080829, end: 20081028

REACTIONS (3)
  - ACUTE GRAFT VERSUS HOST DISEASE [None]
  - CYTOMEGALOVIRUS VIRAEMIA [None]
  - SEPSIS [None]
